FAERS Safety Report 9870168 (Version 3)
Quarter: 2014Q1

REPORT INFORMATION
  Report Type: Spontaneous
  Country: US (occurrence: US)
  Receive Date: 20140205
  Receipt Date: 20140220
  Transmission Date: 20141002
  Serious: Yes (Other)
  Sender: FDA-Public Use
  Company Number: US-JNJFOC-20140119634

PATIENT
  Age: 83 Year
  Sex: Male
  Weight: 56.7 kg

DRUGS (11)
  1. XARELTO [Suspect]
     Indication: CEREBROVASCULAR ACCIDENT PROPHYLAXIS
     Route: 048
     Dates: start: 20140120
  2. XARELTO [Suspect]
     Indication: CEREBROVASCULAR ACCIDENT PROPHYLAXIS
     Route: 048
     Dates: start: 20140113, end: 20140117
  3. XARELTO [Suspect]
     Indication: ATRIAL FIBRILLATION
     Route: 048
     Dates: start: 20140120
  4. XARELTO [Suspect]
     Indication: ATRIAL FIBRILLATION
     Route: 048
     Dates: start: 20140113, end: 20140117
  5. ASPIRIN [Suspect]
     Indication: PRODUCT USED FOR UNKNOWN INDICATION
     Route: 065
  6. SIMVASTATIN [Concomitant]
     Route: 065
  7. MULTAQ [Concomitant]
     Route: 065
  8. VICODIN [Concomitant]
     Route: 065
  9. DILTIAZEM [Concomitant]
     Route: 065
  10. AMBIEN [Concomitant]
     Route: 065
  11. DIAZEPAM [Concomitant]
     Route: 065

REACTIONS (2)
  - Eye haemorrhage [Unknown]
  - Incorrect dose administered [Unknown]
